FAERS Safety Report 25118900 (Version 1)
Quarter: 2025Q1

REPORT INFORMATION
  Report Type: Spontaneous
  Country: US (occurrence: US)
  Receive Date: 20250325
  Receipt Date: 20250325
  Transmission Date: 20250408
  Serious: Yes (Hospitalization)
  Sender: SANOFI AVENTIS
  Company Number: US-SA-2025SA080115

PATIENT
  Age: 18 Year
  Sex: Female
  Weight: 40.68 kg

DRUGS (11)
  1. DUPIXENT [Suspect]
     Active Substance: DUPILUMAB
     Indication: Dermatitis atopic
     Dosage: 200 MG, QOW
     Route: 058
  2. ENALAPRIL MALEATE [Concomitant]
     Active Substance: ENALAPRIL MALEATE
  3. CARVEDILOL [Concomitant]
     Active Substance: CARVEDILOL
  4. DIGOXIN [Concomitant]
     Active Substance: DIGOXIN
  5. SPIRONOLACTONE [Concomitant]
     Active Substance: SPIRONOLACTONE
  6. WARFARIN SODIUM [Concomitant]
     Active Substance: WARFARIN SODIUM
  7. MELATONIN [Concomitant]
     Active Substance: MELATONIN
  8. LASIX [Concomitant]
     Active Substance: FUROSEMIDE
  9. MYCOPHENOLATE MOFETIL [Concomitant]
     Active Substance: MYCOPHENOLATE MOFETIL
  10. CLARITIN [Concomitant]
     Active Substance: LORATADINE
  11. ASPIRIN [Concomitant]
     Active Substance: ASPIRIN

REACTIONS (4)
  - Heart transplant [Recovered/Resolved]
  - Headache [Not Recovered/Not Resolved]
  - Back pain [Not Recovered/Not Resolved]
  - Incorrect dose administered [Unknown]

NARRATIVE: CASE EVENT DATE: 20250224
